FAERS Safety Report 13354150 (Version 1)
Quarter: 2017Q1

REPORT INFORMATION
  Report Type: Spontaneous
  Country: US (occurrence: US)
  Receive Date: 20170320
  Receipt Date: 20170320
  Transmission Date: 20170429
  Serious: Yes (Hospitalization)
  Sender: FDA-Public Use
  Company Number: None

PATIENT
  Age: 81 Year
  Sex: Female
  Weight: 67.5 kg

DRUGS (6)
  1. HYALURONIC ACID AND MSM [Concomitant]
  2. CALCIUM MAGNESIUM CITRATE-PLUS VITAMIN D [Concomitant]
  3. LIQUID COQ10 [Concomitant]
  4. VENLAFAXINE [Suspect]
     Active Substance: VENLAFAXINE HYDROCHLORIDE
     Indication: HEADACHE
     Dosage: ?          QUANTITY:1 TABLET(S);?
     Route: 048
     Dates: start: 20170318, end: 20170318
  5. GLUCOSAMINE WITH CHONDROITIN [Concomitant]
  6. LIFETIME BRAND DIETARY SUPPLEMENT [Concomitant]

REACTIONS (8)
  - Nausea [None]
  - Atrial fibrillation [None]
  - Dysstasia [None]
  - Vomiting [None]
  - Tremor [None]
  - Therapy non-responder [None]
  - Speech disorder [None]
  - Dizziness [None]

NARRATIVE: CASE EVENT DATE: 20170318
